FAERS Safety Report 14588331 (Version 2)
Quarter: 2018Q1

REPORT INFORMATION
  Report Type: Spontaneous
  Country: RO (occurrence: RO)
  Receive Date: 20180301
  Receipt Date: 20180309
  Transmission Date: 20180509
  Serious: Yes (Other)
  Sender: FDA-Public Use
  Company Number: RO-ASTRAZENECA-2018SE24842

PATIENT
  Age: 66 Year
  Sex: Male

DRUGS (6)
  1. ASPENTER [Concomitant]
     Active Substance: ASPIRIN
     Dosage: 75MG 1CP/DAY
  2. ONGLYZA [Suspect]
     Active Substance: SAXAGLIPTIN HYDROCHLORIDE
     Indication: TYPE 2 DIABETES MELLITUS
     Dosage: 5.0MG UNKNOWN
     Route: 048
     Dates: start: 20170601, end: 20171101
  3. NOLIPREL FORTE [Concomitant]
     Dosage: 1CP/DAY
  4. MILGAMMA N [Concomitant]
     Active Substance: BENFOTIAMINE\CYANOCOBALAMIN\PYRIDOXINE HYDROCHLORIDE
     Dosage: 1CPX2/DAY
  5. CRESTOR [Concomitant]
     Active Substance: ROSUVASTATIN CALCIUM
     Dosage: 5MG 1CP/DAY
  6. BETALOC ZOK [Concomitant]
     Active Substance: METOPROLOL SUCCINATE
     Dosage: 50MG 1CP/DAY

REACTIONS (3)
  - Constipation [Recovered/Resolved]
  - Intestinal obstruction [Unknown]
  - Abdominal distension [Recovered/Resolved]

NARRATIVE: CASE EVENT DATE: 201611
